FAERS Safety Report 7752669-1 (Version None)
Quarter: 2011Q3

REPORT INFORMATION
  Report Type: 
  Country: None (occurrence: None)
  Receive Date: 20110915
  Receipt Date: 20110823
  Transmission Date: 20111222
  Serious: Yes (Hospitalization)
  Sender: FDA-Public Use
  Company Number: TR-US-EMD SERONO, INC.-7082090

PATIENT
  Sex: Male

DRUGS (4)
  1. HYDROCORTISONE [Suspect]
     Indication: OCULAR NEOPLASM
     Route: 048
     Dates: start: 20100516
  2. MINIRIN [Suspect]
     Indication: OCULAR NEOPLASM
     Route: 048
     Dates: start: 20100516
  3. SAIZEN [Suspect]
     Indication: GROWTH HORMONE DEFICIENCY
     Route: 058
     Dates: start: 20110103, end: 20110512
  4. LEVOTHYROXINE SODIUM [Concomitant]
     Indication: HYPOTHYROIDISM
     Route: 048
     Dates: start: 20100516

REACTIONS (3)
  - SYNCOPE [None]
  - NEOPLASM PROGRESSION [None]
  - HYDROCEPHALUS [None]
